FAERS Safety Report 5034905-8 (Version None)
Quarter: 2006Q2

REPORT INFORMATION
  Report Type: 
  Country: None (occurrence: None)
  Receive Date: 20060627
  Receipt Date: 20060213
  Transmission Date: 20061013
  Serious: Yes (Other)
  Sender: FDA-Public Use
  Company Number: PHBS2006BR02439

PATIENT
  Age: 61 Year
  Sex: Male
  Weight: 73 kg

DRUGS (6)
  1. FORASEQ [Suspect]
     Indication: CHRONIC OBSTRUCTIVE PULMONARY DISEASE
     Dosage: 1 DF, BID
     Dates: start: 20030101
  2. PREDNISONE TAB [Concomitant]
  3. ZETSMIN [Concomitant]
     Indication: BLOOD CHOLESTEROL INCREASED
  4. OMEPRAZOLE [Concomitant]
     Indication: STOMACH DISCOMFORT
  5. BEROTEC [Concomitant]
     Indication: EMPHYSEMA
     Dosage: UNK, UNK
     Dates: start: 20030101
  6. TALOFILINA [Concomitant]
     Indication: EMPHYSEMA
     Dosage: 2 DF/DAY
     Route: 048
     Dates: start: 20030101

REACTIONS (9)
  - DRY MOUTH [None]
  - DYSPNOEA [None]
  - FALL [None]
  - FOOT FRACTURE [None]
  - JOINT DISLOCATION [None]
  - LUNG INFECTION [None]
  - OEDEMA PERIPHERAL [None]
  - ORAL CANDIDIASIS [None]
  - SLEEP DISORDER [None]
